FAERS Safety Report 8896662 (Version 1)
Quarter: 2012Q4

REPORT INFORMATION
  Report Type: 
  Country: BR (occurrence: BR)
  Receive Date: 20121108
  Receipt Date: 20121108
  Transmission Date: 20130627
  Serious: Yes (Other)
  Sender: FDA-Public Use
  Company Number: PHHY2012BR102333

PATIENT
  Sex: Male

DRUGS (6)
  1. DOXAZOSIN MESYLATE [Suspect]
     Indication: BENIGN PROSTATIC HYPERPLASIA
     Dosage: 1 DF, daily dose
     Route: 048
     Dates: start: 20121103, end: 20121104
  2. SIMVASTATIN [Concomitant]
     Indication: BLOOD CHOLESTEROL
  3. ASPIRIN [Concomitant]
     Indication: THROMBOSIS
  4. ATENOLOL [Concomitant]
     Indication: HEART RATE IRREGULAR
  5. ENALAPRIL [Concomitant]
     Indication: HYPERTENSION
  6. OMEPRAZOLE [Concomitant]
     Indication: GASTRIC DISORDER

REACTIONS (4)
  - Blood pressure decreased [Recovered/Resolved]
  - Dyspnoea [Recovered/Resolved]
  - Vision blurred [Recovered/Resolved]
  - Malaise [Recovered/Resolved]
